FAERS Safety Report 6899822-7 (Version None)
Quarter: 2010Q3

REPORT INFORMATION
  Report Type: 
  Country: None (occurrence: None)
  Receive Date: 20100803
  Receipt Date: 20100720
  Transmission Date: 20110219
  Serious: Yes (Other)
  Sender: FDA-Public Use
  Company Number: DE-MYLANLABS-2010S1012974

PATIENT
  Age: 16 Year
  Sex: Male
  Weight: 64 kg

DRUGS (1)
  1. AMITRIPTYLINE HCL [Suspect]
     Indication: ABDOMINAL PAIN
     Dosage: DAILY DOSE: 220 MG MILLGRAM(S) EVERY DAYS
     Route: 048
     Dates: start: 20100609

REACTIONS (4)
  - CONFUSIONAL STATE [None]
  - FATIGUE [None]
  - INTENTIONAL OVERDOSE [None]
  - SPEECH DISORDER [None]
